FAERS Safety Report 24933889 (Version 1)
Quarter: 2025Q1

REPORT INFORMATION
  Report Type: Report from Study
  Country: US (occurrence: US)
  Receive Date: 20250206
  Receipt Date: 20250206
  Transmission Date: 20250408
  Serious: Yes (Hospitalization, Other)
  Sender: EXELIXIS
  Company Number: US-EXELIXIS-CABO-24075576

PATIENT
  Age: 65 Year
  Sex: Female
  Weight: 75.7 kg

DRUGS (14)
  1. CABOMETYX [Suspect]
     Active Substance: CABOZANTINIB S-MALATE
     Indication: Malignant ossifying fibromyxoid tumour
     Dosage: 40 MG, QD
     Route: 048
     Dates: start: 20240205, end: 20240508
  2. CABOMETYX [Suspect]
     Active Substance: CABOZANTINIB S-MALATE
     Indication: Malignant connective tissue neoplasm
     Dosage: 40 MG, QD
     Route: 048
     Dates: start: 20240516
  3. CABOMETYX [Suspect]
     Active Substance: CABOZANTINIB S-MALATE
     Indication: Soft tissue sarcoma
     Dosage: 40 MG, QD
     Route: 048
  4. CABOMETYX [Suspect]
     Active Substance: CABOZANTINIB S-MALATE
     Indication: Metastases to lung
  5. CABOMETYX [Suspect]
     Active Substance: CABOZANTINIB S-MALATE
     Indication: Neuroendocrine tumour
  6. ALBUTEROL [Concomitant]
     Active Substance: ALBUTEROL
     Indication: Wheezing
  7. ALBUTEROL [Concomitant]
     Active Substance: ALBUTEROL
     Indication: Dyspnoea
  8. NORVASC [Concomitant]
     Active Substance: AMLODIPINE BESYLATE
  9. CLARITIN [Concomitant]
     Active Substance: LORATADINE
     Indication: Hypersensitivity
  10. COZAAR [Concomitant]
     Active Substance: LOSARTAN POTASSIUM
  11. ZOLOFT [Concomitant]
     Active Substance: SERTRALINE HYDROCHLORIDE
  12. XYLOCAINE [Concomitant]
     Active Substance: LIDOCAINE HYDROCHLORIDE
  13. NON FORMULARY [Concomitant]
  14. METAMUCIL [Concomitant]
     Active Substance: PLANTAGO SEED

REACTIONS (22)
  - Hypothyroidism [Not Recovered/Not Resolved]
  - Respiratory distress [Unknown]
  - Pneumothorax [Recovering/Resolving]
  - Haemoptysis [Recovered/Resolved]
  - Hair colour changes [Unknown]
  - Fatigue [Unknown]
  - Stomatitis [Unknown]
  - Palmar-plantar erythrodysaesthesia syndrome [Recovering/Resolving]
  - Dysgeusia [Unknown]
  - Diarrhoea [Recovering/Resolving]
  - Nausea [Recovering/Resolving]
  - Aspartate aminotransferase increased [Recovering/Resolving]
  - Blood alkaline phosphatase increased [Recovering/Resolving]
  - Alanine aminotransferase increased [Recovering/Resolving]
  - Hypertension [Recovering/Resolving]
  - Abdominal discomfort [Unknown]
  - Skin disorder [Unknown]
  - Plicated tongue [Unknown]
  - Hypophagia [Unknown]
  - Gastrointestinal disorder [Unknown]
  - Brain fog [Unknown]
  - Off label use [Unknown]

NARRATIVE: CASE EVENT DATE: 20240201
